FAERS Safety Report 11379548 (Version 3)
Quarter: 2016Q1

REPORT INFORMATION
  Report Type: Report from Study
  Country: US (occurrence: US)
  Receive Date: 20150814
  Receipt Date: 20160211
  Transmission Date: 20160525
  Serious: Yes (Hospitalization)
  Sender: FDA-Public Use
  Company Number: PHHY2015US067871

PATIENT
  Age: 41 Year
  Sex: Female
  Weight: 61.2 kg

DRUGS (12)
  1. MORPHINE [Suspect]
     Active Substance: MORPHINE
     Indication: MULTIPLE SCLEROSIS RELAPSE
  2. DELTASONE [Concomitant]
     Active Substance: PREDNISONE
     Indication: PRODUCT USED FOR UNKNOWN INDICATION
     Dosage: 1 DF, QD
     Route: 048
  3. GILENYA [Suspect]
     Active Substance: FINGOLIMOD HYDROCHLORIDE
     Indication: RELAPSING-REMITTING MULTIPLE SCLEROSIS
     Dosage: 0.5 MG, QD
     Route: 048
     Dates: start: 20140806
  4. SYMMETREL [Concomitant]
     Active Substance: AMANTADINE HYDROCHLORIDE
     Indication: PRODUCT USED FOR UNKNOWN INDICATION
     Route: 065
  5. LIORESAL [Concomitant]
     Active Substance: BACLOFEN
     Indication: MUSCLE SPASTICITY
     Dosage: 1 DF, BID
     Route: 048
  6. LIORESAL [Concomitant]
     Active Substance: BACLOFEN
     Indication: PAIN
  7. LYRICA [Concomitant]
     Active Substance: PREGABALIN
     Indication: MULTIPLE SCLEROSIS
     Dosage: TAKE ONE CAPSULE (50 MG) IN THE MORNING AND ONE CAPSULE (50 MG) IN THE AFTERNOON AND 2
     Route: 048
  8. AZULFIDINE [Concomitant]
     Active Substance: SULFASALAZINE
     Indication: PRODUCT USED FOR UNKNOWN INDICATION
     Route: 065
  9. SENNA [Concomitant]
     Active Substance: SENNA LEAF\SENNOSIDES\SENNOSIDES A AND B
     Indication: PRODUCT USED FOR UNKNOWN INDICATION
     Dosage: 2 DF, (NIGHTLY)
     Route: 048
  10. COLACE [Concomitant]
     Active Substance: DOCUSATE SODIUM
     Indication: PRODUCT USED FOR UNKNOWN INDICATION
     Dosage: 1 DF, BID
     Route: 048
  11. MORPHINE [Suspect]
     Active Substance: MORPHINE
     Indication: NEURALGIA
     Dosage: UNK
     Route: 042
     Dates: start: 20151108, end: 20151113
  12. VITAMIN D [Concomitant]
     Active Substance: CHOLECALCIFEROL
     Indication: VITAMIN D DEFICIENCY
     Dosage: 400 U, QD
     Route: 048

REACTIONS (19)
  - Arthritis [Unknown]
  - Musculoskeletal pain [Recovering/Resolving]
  - Hallucination, visual [Unknown]
  - Multiple sclerosis relapse [Recovering/Resolving]
  - Gait disturbance [Unknown]
  - Constipation [Unknown]
  - Musculoskeletal stiffness [Unknown]
  - Anxiety [Unknown]
  - Red blood cell count decreased [Unknown]
  - Hemiparesis [Recovering/Resolving]
  - Haematocrit decreased [Unknown]
  - Carbon dioxide increased [Unknown]
  - Temperature intolerance [Unknown]
  - Pain [Unknown]
  - Fatigue [Unknown]
  - Balance disorder [Unknown]
  - Muscle spasms [Unknown]
  - Asthenia [Unknown]
  - Haemoglobin decreased [Unknown]

NARRATIVE: CASE EVENT DATE: 20141021
